FAERS Safety Report 6694106-4 (Version None)
Quarter: 2010Q2

REPORT INFORMATION
  Report Type: 
  Country: None (occurrence: None)
  Receive Date: 20100423
  Receipt Date: 20100414
  Transmission Date: 20101027
  Serious: Yes (Life-Threatening, Hospitalization, Disabling, Congenital Anomaly)
  Sender: FDA-Public Use
  Company Number: US-ROCHE-687887

PATIENT
  Sex: Female
  Weight: 50.9 kg

DRUGS (7)
  1. PEGASYS [Suspect]
     Indication: HEPATITIS C
     Route: 058
     Dates: start: 20090428, end: 20100221
  2. RIBAVIRIN [Suspect]
     Indication: HEPATITIS C
     Route: 048
     Dates: start: 20090428, end: 20100223
  3. PREMARIN [Concomitant]
     Dosage: INDICATION: HORMONAL
     Route: 048
  4. ATENOLOL [Concomitant]
     Indication: HYPERTENSION
     Route: 048
  5. TRAZODONE HCL [Concomitant]
     Indication: INSOMNIA
     Route: 048
     Dates: start: 20040428
  6. LISINOPRIL [Concomitant]
     Indication: HYPERTENSION
     Route: 048
  7. NORVASC [Concomitant]
     Indication: HYPERTENSION
     Route: 048

REACTIONS (6)
  - AGGRESSION [None]
  - BLINDNESS [None]
  - CONFUSIONAL STATE [None]
  - PNEUMONIA [None]
  - REVERSIBLE POSTERIOR LEUKOENCEPHALOPATHY SYNDROME [None]
  - UROSEPSIS [None]
